FAERS Safety Report 23571245 (Version 3)
Quarter: 2024Q3

REPORT INFORMATION
  Report Type: Spontaneous
  Country: US (occurrence: US)
  Receive Date: 20240227
  Receipt Date: 20240830
  Transmission Date: 20241016
  Serious: Yes (Other)
  Sender: BRISTOL MYERS SQUIBB
  Company Number: US-BRISTOL-MYERS SQUIBB COMPANY-2024-027504

PATIENT
  Age: 76 Year
  Sex: Male

DRUGS (2)
  1. LENALIDOMIDE [Suspect]
     Active Substance: LENALIDOMIDE
     Indication: Plasma cell myeloma
     Dosage: TAKE 1 WHOLE CAPSULE BY MOUTH WITH WATER EVERY DAY ON DAYS 1-21 FOLLOWED BY A 7 DAY REST PERIOD. DO
     Route: 048
  2. LENALIDOMIDE [Suspect]
     Active Substance: LENALIDOMIDE
     Indication: Plasma cell myeloma in remission
     Dosage: TAKE1 CAPSULE WHOLE BY MOUTH WITH WATER EVERY DAY ON DAYS 1-21 FOLLOWED BY 7 DAYS OFF DO NOT BREAK C
     Route: 048

REACTIONS (6)
  - Neck pain [Unknown]
  - Fatigue [Unknown]
  - Skin exfoliation [Unknown]
  - COVID-19 [Unknown]
  - Product prescribing issue [Unknown]
  - Therapy interrupted [Unknown]
